FAERS Safety Report 25224429 (Version 1)
Quarter: 2025Q2

REPORT INFORMATION
  Report Type: Spontaneous
  Country: US (occurrence: US)
  Receive Date: 20250422
  Receipt Date: 20250422
  Transmission Date: 20250716
  Serious: Yes (Life-Threatening, Hospitalization, Other)
  Sender: AUROBINDO
  Company Number: US-MLMSERVICE-20250331-PI462047-00201-1

PATIENT
  Age: 15 Year
  Sex: Male

DRUGS (5)
  1. LIDOCAINE [Suspect]
     Active Substance: LIDOCAINE
     Indication: Pain
  2. KETAMINE [Concomitant]
     Active Substance: KETAMINE
     Indication: Pain
     Route: 065
  3. MEXILETINE [Concomitant]
     Active Substance: MEXILETINE
     Indication: Pain
     Route: 048
  4. FAT EMULSION NOS [Concomitant]
     Active Substance: EGG PHOSPHOLIPIDS\SAFFLOWER OIL\SOYBEAN OIL
     Indication: Product used for unknown indication
     Route: 042
  5. RANOLAZINE [Concomitant]
     Active Substance: RANOLAZINE
     Indication: Product used for unknown indication
     Route: 065

REACTIONS (4)
  - Cardiogenic shock [Unknown]
  - Autonomic nervous system imbalance [Unknown]
  - Mental status changes [Unknown]
  - Hypertonia [Unknown]
